FAERS Safety Report 14799155 (Version 1)
Quarter: 2018Q2

REPORT INFORMATION
  Report Type: Spontaneous
  Country: US (occurrence: US)
  Receive Date: 20180424
  Receipt Date: 20180424
  Transmission Date: 20180711
  Serious: Yes (Other)
  Sender: FDA-Public Use
  Company Number: US-WEST-WARD PHARMACEUTICALS CORP.-US-H14001-18-03054

PATIENT
  Sex: Female

DRUGS (4)
  1. OXYCODONE [Suspect]
     Active Substance: OXYCODONE
     Indication: BACK PAIN
     Route: 065
  2. DILAUDID [Suspect]
     Active Substance: HYDROMORPHONE HYDROCHLORIDE
     Indication: BACK PAIN
     Route: 065
  3. TYLENOL [Concomitant]
     Active Substance: ACETAMINOPHEN
     Indication: BACK PAIN
     Route: 065
  4. METHADONE [Suspect]
     Active Substance: METHADONE HYDROCHLORIDE
     Indication: BACK PAIN
     Route: 065

REACTIONS (22)
  - Suicidal ideation [Unknown]
  - Prescribed overdose [Unknown]
  - Hallucination [Unknown]
  - Dysuria [Unknown]
  - Hyperhidrosis [Unknown]
  - Coronary artery occlusion [Unknown]
  - Tremor [Unknown]
  - Rhinorrhoea [Unknown]
  - Dyskinesia [Unknown]
  - Vomiting [Unknown]
  - Fatigue [Unknown]
  - Hot flush [Unknown]
  - Sneezing [Unknown]
  - Drug ineffective [Unknown]
  - Abdominal pain [Unknown]
  - Asthenia [Unknown]
  - Spinal operation [Unknown]
  - Abdominal distension [Unknown]
  - Somnambulism [Unknown]
  - Constipation [Unknown]
  - Amnesia [Unknown]
  - Irritability [Unknown]

NARRATIVE: CASE EVENT DATE: 20170911
